FAERS Safety Report 26110043 (Version 1)
Quarter: 2025Q4

REPORT INFORMATION
  Report Type: Report from Study
  Country: MX (occurrence: MX)
  Receive Date: 20251201
  Receipt Date: 20251201
  Transmission Date: 20260118
  Serious: Yes (Death, Hospitalization)
  Sender: ABBVIE
  Company Number: MX-ABBVIE-6567162

PATIENT
  Age: 58 Year
  Sex: Female
  Weight: 67 kg

DRUGS (9)
  1. RINVOQ [Suspect]
     Active Substance: UPADACITINIB
     Indication: Rheumatoid arthritis
     Dosage: 15MG
     Route: 048
     Dates: start: 20251111, end: 20251114
  2. RINVOQ [Suspect]
     Active Substance: UPADACITINIB
     Indication: Rheumatoid arthritis
     Dosage: 15MG
     Route: 048
  3. PREDNISONE [Concomitant]
     Active Substance: PREDNISONE
     Indication: Rheumatoid arthritis
     Dosage: 5 MG ONE TABLET EVERY 24 HOURS.
     Route: 048
     Dates: start: 20251030, end: 20251114
  4. EXFORGE HCT [Concomitant]
     Active Substance: AMLODIPINE BESYLATE\HYDROCHLOROTHIAZIDE\VALSARTAN
     Indication: Hypertension
     Dosage: 5 MG/ 160 MG/ 12.5 MG ?ONE TABLET EVERY 24 HOURS
     Route: 048
     Dates: end: 20251114
  5. Stadium [Concomitant]
     Indication: Rheumatoid arthritis
     Dosage: ROA; INTRAMUSCULAR INJECTABLE SOLUTION?50 MG ONE INJECTION EVERY 24 HOURS
     Dates: start: 20251030, end: 20251114
  6. PREGABALIN [Concomitant]
     Active Substance: PREGABALIN
     Indication: Rheumatoid arthritis
     Dosage: 150 MG ONE TABLET EVERY 24 ?HOURS.
     Route: 048
     Dates: start: 20251030, end: 20251114
  7. FOLIC ACID [Concomitant]
     Active Substance: FOLIC ACID
     Indication: Rheumatoid arthritis
     Dosage: 5 MG ONE TABLET EVERY 24 ?HOURS.
     Route: 048
     Dates: end: 20251114
  8. METHOTREXATE [Concomitant]
     Active Substance: METHOTREXATE
     Indication: Rheumatoid arthritis
     Route: 048
     Dates: end: 20251114
  9. CELECOXIB [Concomitant]
     Active Substance: CELECOXIB
     Indication: Rheumatoid arthritis
     Dosage: 200 MG ONE TABLET EVERY 8 HOURS.
     Route: 048
     Dates: start: 20251030, end: 20251114

REACTIONS (12)
  - Renal failure [Fatal]
  - Pain in extremity [Unknown]
  - Drug ineffective [Unknown]
  - Malaise [Unknown]
  - Bacterial infection [Unknown]
  - Hypotension [Recovered/Resolved]
  - Urinary tract infection bacterial [Unknown]
  - Gastrointestinal microorganism overgrowth [Unknown]
  - Peripheral swelling [Unknown]
  - Dyspnoea [Unknown]
  - Fluid retention [Unknown]
  - Pulmonary oedema [Fatal]

NARRATIVE: CASE EVENT DATE: 20251101
